FAERS Safety Report 22095746 (Version 2)
Quarter: 2023Q1

REPORT INFORMATION
  Report Type: Report from Study
  Country: CH (occurrence: CH)
  Receive Date: 20230314
  Receipt Date: 20230321
  Transmission Date: 20230417
  Serious: Yes (Hospitalization)
  Sender: FDA-Public Use
  Company Number: CH-ABBVIE-4242724

PATIENT
  Sex: Female

DRUGS (5)
  1. CARBIDOPA\LEVODOPA [Suspect]
     Active Substance: CARBIDOPA\LEVODOPA
     Indication: Parkinson^s disease
     Dosage: DRUG START DATE 21 FEB 2022?DRUG STOP DATE 31 MAY 2022
     Route: 050
  2. CARBIDOPA\LEVODOPA [Suspect]
     Active Substance: CARBIDOPA\LEVODOPA
     Dosage: MD:2 ML, CRD: 2.4 ML/H, ED: 1 ML?FREQUENCY TEXT: 16H THERAPY?DRUG START DATE 22 FEB 2023
     Route: 050
  3. CARBIDOPA\LEVODOPA [Suspect]
     Active Substance: CARBIDOPA\LEVODOPA
     Dosage: MD: 4.8 ML, CRD: 3.5 ML/H, ED: 3.0 ML?FREQUENCY TEXT: 16H THERAPY?DRUG START DATE 31 MAY 2022
     Route: 050
  4. BOTOX [Suspect]
     Active Substance: ONABOTULINUMTOXINA
     Indication: Salivary hypersecretion
     Route: 065
  5. CLOZAPINE [Concomitant]
     Active Substance: CLOZAPINE
     Indication: Product used for unknown indication

REACTIONS (11)
  - Hallucinations, mixed [Not Recovered/Not Resolved]
  - Dizziness [Recovered/Resolved]
  - Salivary hypersecretion [Recovering/Resolving]
  - Fatigue [Not Recovered/Not Resolved]
  - Speech disorder [Not Recovered/Not Resolved]
  - Hallucination [Recovered/Resolved]
  - Fall [Recovering/Resolving]
  - Akinesia [Not Recovered/Not Resolved]
  - Psychotic disorder [Unknown]
  - Fatigue [Not Recovered/Not Resolved]
  - Overdose [Unknown]

NARRATIVE: CASE EVENT DATE: 20220101
